FAERS Safety Report 7249857-X (Version None)
Quarter: 2011Q1

REPORT INFORMATION
  Report Type: 
  Country: None (occurrence: None)
  Receive Date: 20110128
  Receipt Date: 20100621
  Transmission Date: 20110831
  Serious: Yes (Hospitalization)
  Sender: FDA-Public Use
  Company Number: A0866312A

PATIENT
  Age: 45 Year
  Sex: Male

DRUGS (3)
  1. WELLBUTRIN [Suspect]
     Indication: DEPRESSION
     Route: 048
     Dates: start: 20050101
  2. PAIN MEDICATION [Concomitant]
  3. TOPROL-XL [Concomitant]

REACTIONS (8)
  - HALLUCINATION [None]
  - ANGER [None]
  - URTICARIA [None]
  - PRURITUS [None]
  - LOCAL SWELLING [None]
  - MOOD ALTERED [None]
  - DECREASED INTEREST [None]
  - FEELING ABNORMAL [None]
